FAERS Safety Report 7767394-0 (Version None)
Quarter: 2011Q3

REPORT INFORMATION
  Report Type: 
  Country: None (occurrence: None)
  Receive Date: 20110922
  Receipt Date: 20100809
  Transmission Date: 20111222
  Serious: No
  Sender: FDA-Public Use
  Company Number: US-ASTRAZENECA-2007UW12265

PATIENT
  Age: 54 Year
  Sex: Female
  Weight: 94.8 kg

DRUGS (24)
  1. SEROQUEL [Suspect]
     Dosage: 150 MG - 200 MG
     Route: 048
     Dates: start: 20040201, end: 20060601
  2. SEROQUEL [Suspect]
     Dosage: 150 MG - 200 MG
     Route: 048
     Dates: start: 20040201, end: 20060601
  3. SEROQUEL [Suspect]
     Indication: DEPRESSION
     Dosage: 100-200 MG  AT NIGHT
     Route: 048
     Dates: start: 20031007
  4. SEROQUEL [Suspect]
     Route: 048
     Dates: start: 20060413
  5. SEROQUEL [Suspect]
     Dosage: 150 MG -200 MG
     Route: 048
     Dates: start: 20040201, end: 20060720
  6. SEROQUEL [Suspect]
     Dosage: 150 MG -200 MG
     Route: 048
     Dates: start: 20040201, end: 20060720
  7. WELLBUTRIN [Concomitant]
     Dosage: 300
     Route: 065
  8. DIOVAN [Concomitant]
     Dosage: 160
     Route: 065
  9. SEROQUEL [Suspect]
     Indication: IRRITABILITY
     Dosage: 100-200 MG  AT NIGHT
     Route: 048
     Dates: start: 20031007
  10. SEROQUEL [Suspect]
     Indication: AFFECTIVE DISORDER
     Dosage: 100-200 MG  AT NIGHT
     Route: 048
     Dates: start: 20031007
  11. SEROQUEL [Suspect]
     Route: 048
     Dates: start: 20060413
  12. SEROQUEL [Suspect]
     Route: 048
     Dates: start: 20060413
  13. SEROQUEL [Suspect]
     Indication: INSOMNIA
     Dosage: 100-200 MG  AT NIGHT
     Route: 048
     Dates: start: 20031007
  14. SEROQUEL [Suspect]
     Dosage: 150 MG - 200 MG
     Route: 048
     Dates: start: 20040201, end: 20060601
  15. SEROQUEL [Suspect]
     Dosage: 150 MG - 200 MG
     Route: 048
     Dates: start: 20040201, end: 20060601
  16. SEROQUEL [Suspect]
     Dosage: 150 MG -200 MG
     Route: 048
     Dates: start: 20040201, end: 20060720
  17. SEROQUEL [Suspect]
     Dosage: 150 MG -200 MG
     Route: 048
     Dates: start: 20040201, end: 20060720
  18. ATENOLOL [Concomitant]
     Route: 065
  19. STRATTERA [Concomitant]
  20. ASPIRIN [Concomitant]
     Route: 065
  21. METFORMIN HCL [Concomitant]
     Route: 065
  22. SEROQUEL [Suspect]
     Route: 048
     Dates: start: 20060413
  23. CLONAZEPAM [Concomitant]
     Route: 065
  24. LEXAPRO [Concomitant]
     Indication: MOOD ALTERED

REACTIONS (4)
  - PAIN [None]
  - ARTHRALGIA [None]
  - TYPE 2 DIABETES MELLITUS [None]
  - ROAD TRAFFIC ACCIDENT [None]
